FAERS Safety Report 10694951 (Version 1)
Quarter: 2015Q1

REPORT INFORMATION
  Report Type: Spontaneous
  Country: US (occurrence: None)
  Receive Date: 20150106
  Receipt Date: 20150106
  Transmission Date: 20150721
  Serious: No
  Sender: FDA-Public Use
  Company Number: None

PATIENT
  Age: 74 Year
  Sex: Female
  Weight: 63.05 kg

DRUGS (1)
  1. LINZESS [Suspect]
     Active Substance: LINACLOTIDE
     Dosage: 1 CAPSUL  ONCE DAILY TAKEN BY MOUTH
     Route: 048

REACTIONS (6)
  - Chills [None]
  - Flatulence [None]
  - Diarrhoea [None]
  - Blood pressure systolic increased [None]
  - Muscle spasms [None]
  - Heart rate increased [None]

NARRATIVE: CASE EVENT DATE: 20150105
